FAERS Safety Report 8261393-0 (Version None)
Quarter: 2012Q1

REPORT INFORMATION
  Report Type: 
  Country: None (occurrence: None)
  Receive Date: 20120327
  Receipt Date: 20100507
  Transmission Date: 20120608
  Serious: Yes (Other)
  Sender: FDA-Public Use
  Company Number: PHEH2010US02636

PATIENT
  Sex: Female

DRUGS (2)
  1. GLEEVEC [Suspect]
     Indication: CONNECTIVE TISSUE NEOPLASM
     Dosage: 400 MG, QD, ORAL
     Route: 048
     Dates: start: 20090724, end: 20100219
  2. GLEEVEC [Suspect]
     Indication: SOFT TISSUE NEOPLASM
     Dosage: 400 MG, QD, ORAL
     Route: 048
     Dates: start: 20090724, end: 20100219

REACTIONS (1)
  - DISEASE PROGRESSION [None]
